FAERS Safety Report 8966327 (Version 1)
Quarter: 2012Q4

REPORT INFORMATION
  Report Type: 
  Country: FR (occurrence: FR)
  Receive Date: 20121216
  Receipt Date: 20121216
  Transmission Date: 20130627
  Serious: Yes (Other)
  Sender: FDA-Public Use
  Company Number: FR-BRISTOL-MYERS SQUIBB COMPANY-17219296

PATIENT
  Age: 4 Year
  Sex: Female

DRUGS (8)
  1. ETOPOSIDE [Suspect]
     Indication: BURKITT^S LYMPHOMA
  2. CYCLOPHOSPHAMIDE [Suspect]
     Indication: BURKITT^S LYMPHOMA
  3. VINCRISTINE [Suspect]
     Indication: BURKITT^S LYMPHOMA
  4. PREDNISONE [Suspect]
     Indication: BURKITT^S LYMPHOMA
  5. DOXORUBICIN [Suspect]
     Indication: BURKITT^S LYMPHOMA
  6. METHOTREXATE [Suspect]
     Indication: BURKITT^S LYMPHOMA
  7. CYTARABINE [Suspect]
     Indication: BURKITT^S LYMPHOMA
  8. RITUXIMAB [Suspect]
     Indication: BURKITT^S LYMPHOMA

REACTIONS (4)
  - Acute respiratory distress syndrome [Unknown]
  - Neutropenia [Unknown]
  - Malnutrition [Unknown]
  - Mucosal inflammation [Unknown]
